FAERS Safety Report 24797239 (Version 1)
Quarter: 2025Q1

REPORT INFORMATION
  Report Type: Spontaneous
  Country: CN (occurrence: CN)
  Receive Date: 20250101
  Receipt Date: 20250101
  Transmission Date: 20250409
  Serious: Yes (Hospitalization)
  Sender: STRIDES
  Company Number: CN-STRIDES ARCOLAB LIMITED-2024SP017273

PATIENT
  Age: 45 Year
  Sex: Male

DRUGS (16)
  1. TENOFOVIR [Suspect]
     Active Substance: TENOFOVIR
     Indication: Antiretroviral therapy
     Route: 065
  2. TENOFOVIR [Suspect]
     Active Substance: TENOFOVIR
     Indication: HIV infection
  3. LAMIVUDINE [Suspect]
     Active Substance: LAMIVUDINE
     Indication: Antiretroviral therapy
     Route: 065
  4. LAMIVUDINE [Suspect]
     Active Substance: LAMIVUDINE
     Indication: HIV infection
  5. DOLUTEGRAVIR [Suspect]
     Active Substance: DOLUTEGRAVIR
     Indication: Antiretroviral therapy
     Route: 065
  6. DOLUTEGRAVIR [Suspect]
     Active Substance: DOLUTEGRAVIR
     Indication: HIV infection
  7. CLARITHROMYCIN [Concomitant]
     Active Substance: CLARITHROMYCIN
     Indication: Mycobacterial infection
     Route: 065
  8. CLARITHROMYCIN [Concomitant]
     Active Substance: CLARITHROMYCIN
     Route: 048
  9. ETHAMBUTOL [Concomitant]
     Active Substance: ETHAMBUTOL HYDROCHLORIDE
     Indication: Mycobacterial infection
     Route: 065
  10. ETHAMBUTOL [Concomitant]
     Active Substance: ETHAMBUTOL HYDROCHLORIDE
     Route: 048
  11. RIFABUTIN [Concomitant]
     Active Substance: RIFABUTIN
     Indication: Mycobacterial infection
     Route: 065
  12. RIFABUTIN [Concomitant]
     Active Substance: RIFABUTIN
     Route: 048
  13. MOXIFLOXACIN [Concomitant]
     Active Substance: MOXIFLOXACIN
     Indication: Mycobacterial infection
     Route: 065
  14. MOXIFLOXACIN [Concomitant]
     Active Substance: MOXIFLOXACIN
     Route: 048
  15. LINEZOLID [Concomitant]
     Active Substance: LINEZOLID
     Indication: Mycobacterial infection
     Route: 065
  16. LINEZOLID [Concomitant]
     Active Substance: LINEZOLID
     Route: 065

REACTIONS (2)
  - Atypical mycobacterial infection [Unknown]
  - Immune reconstitution inflammatory syndrome [Unknown]
